FAERS Safety Report 5558640-2 (Version None)
Quarter: 2007Q4

REPORT INFORMATION
  Report Type: 
  Country: None (occurrence: None)
  Receive Date: 20071214
  Receipt Date: 20071127
  Transmission Date: 20080405
  Serious: No
  Sender: FDA-Public Use
  Company Number: US-BOEHRINGER INGELHEIM PHARMACEUTICALS, INC.-2007-BP-25175BP

PATIENT
  Sex: Male

DRUGS (10)
  1. FLOMAX [Suspect]
     Indication: BENIGN PROSTATIC HYPERPLASIA
     Route: 048
     Dates: start: 20071101
  2. HYDROCHLOROTHIAZIDE [Concomitant]
     Indication: HYPERTENSION
  3. MINOXIDIL [Concomitant]
     Indication: HYPERTENSION
  4. FELODIPINE [Concomitant]
     Indication: HYPERTENSION
  5. K+ [Concomitant]
  6. PLAVIX [Concomitant]
  7. WELLBUTRIN [Concomitant]
     Indication: BIPOLAR DISORDER
  8. CLONAZEPAM [Concomitant]
     Indication: BIPOLAR DISORDER
  9. CARBAMAZEPINE [Concomitant]
     Indication: BIPOLAR DISORDER
  10. ZIPRASIDONE HCL [Concomitant]
     Indication: BIPOLAR DISORDER

REACTIONS (1)
  - DYSURIA [None]
